FAERS Safety Report 14648387 (Version 1)
Quarter: 2018Q1

REPORT INFORMATION
  Report Type: Spontaneous
  Country: US (occurrence: US)
  Receive Date: 20180315
  Receipt Date: 20180315
  Transmission Date: 20180509
  Serious: No
  Sender: FDA-Public Use
  Company Number: None

PATIENT
  Sex: Female
  Weight: 75.6 kg

DRUGS (7)
  1. PRAVASTATIN SODIUM. [Concomitant]
     Active Substance: PRAVASTATIN SODIUM
  2. LEXAPRO [Suspect]
     Active Substance: ESCITALOPRAM OXALATE
     Indication: ATTENTION DEFICIT/HYPERACTIVITY DISORDER
     Dosage: ?          QUANTITY:1 TABLET(S);?
     Route: 048
     Dates: start: 20160216, end: 20180214
  3. MULTIPLE VIATAMIN W/IRON [Concomitant]
  4. VITAMIN D3 [Concomitant]
     Active Substance: CHOLECALCIFEROL
  5. NASACORT AQ [Concomitant]
     Active Substance: TRIAMCINOLONE ACETONIDE
  6. LUTEIN + ZEAXANTHIN [Concomitant]
  7. SELENIUM [Concomitant]
     Active Substance: SELENIUM

REACTIONS (11)
  - Lymphadenopathy [None]
  - Rash [None]
  - Stomatitis [None]
  - Acne pustular [None]
  - Glycosylated haemoglobin increased [None]
  - Secretion discharge [None]
  - Erythema [None]
  - Abnormal dreams [None]
  - Oral herpes [None]
  - Hypersensitivity [None]
  - Emotional distress [None]
